FAERS Safety Report 11092566 (Version 2)
Quarter: 2015Q2

REPORT INFORMATION
  Report Type: Spontaneous
  Country: GB (occurrence: GB)
  Receive Date: 20150506
  Receipt Date: 20150608
  Transmission Date: 20150821
  Serious: Yes (Other)
  Sender: FDA-Public Use
  Company Number: GB-SHIRE-GB201503770

PATIENT
  Age: 8 Year
  Sex: Male
  Weight: 34.8 kg

DRUGS (2)
  1. ELVANSE [Suspect]
     Active Substance: LISDEXAMFETAMINE DIMESYLATE
     Indication: AUTISM SPECTRUM DISORDER
  2. ELVANSE [Suspect]
     Active Substance: LISDEXAMFETAMINE DIMESYLATE
     Indication: ATTENTION DEFICIT/HYPERACTIVITY DISORDER
     Dosage: 30 MG, 1X/DAY:QD
     Route: 048
     Dates: start: 20150304, end: 20150427

REACTIONS (5)
  - Mood altered [Unknown]
  - Morbid thoughts [Recovered/Resolved]
  - Psychomotor hyperactivity [Recovered/Resolved]
  - Anxiety [Recovered/Resolved]
  - Self-injurious ideation [Unknown]

NARRATIVE: CASE EVENT DATE: 20150304
